FAERS Safety Report 21874682 (Version 5)
Quarter: 2023Q2

REPORT INFORMATION
  Report Type: Report from Study
  Country: AE (occurrence: None)
  Receive Date: 20230117
  Receipt Date: 20230601
  Transmission Date: 20230721
  Serious: Yes (Hospitalization)
  Sender: FDA-Public Use
  Company Number: 2023A004446

PATIENT
  Age: 49 Year
  Sex: Female
  Weight: 106 kg

DRUGS (5)
  1. CILGAVIMAB\TIXAGEVIMAB [Suspect]
     Active Substance: CILGAVIMAB\TIXAGEVIMAB
     Indication: COVID-19 treatment
     Dosage: ONCE/SINGLE ADMINISTRATION3.0ML ONCE/SINGLE ADMINISTRATION
     Route: 030
     Dates: start: 20220624
  2. CILGAVIMAB\TIXAGEVIMAB [Suspect]
     Active Substance: CILGAVIMAB\TIXAGEVIMAB
     Indication: COVID-19 treatment
     Dosage: ONCE/SINGLE ADMINISTRATION ONCE/SINGLE ADMINISTRATION
     Route: 030
     Dates: start: 20220724, end: 20220724
  3. SINOPHARM [Concomitant]
     Indication: COVID-19 prophylaxis
     Route: 065
     Dates: start: 20210204
  4. SINOPHARM [Concomitant]
     Indication: COVID-19 prophylaxis
     Route: 065
     Dates: start: 20210301
  5. SINOPHARM [Concomitant]
     Indication: COVID-19 prophylaxis
     Route: 065
     Dates: start: 20210901

REACTIONS (1)
  - B-cell lymphoma [Recovered/Resolved]

NARRATIVE: CASE EVENT DATE: 20220629
